FAERS Safety Report 14342933 (Version 2)
Quarter: 2018Q1

REPORT INFORMATION
  Report Type: Report from Study
  Country: TR (occurrence: TR)
  Receive Date: 20180102
  Receipt Date: 20180109
  Transmission Date: 20180509
  Serious: Yes (Hospitalization)
  Sender: FDA-Public Use
  Company Number: TR-EMD SERONO-9004598

PATIENT
  Age: 36 Year
  Sex: Male
  Weight: 70 kg

DRUGS (3)
  1. DESEFIN [Concomitant]
     Indication: INFECTION
     Route: 042
     Dates: start: 20171115
  2. AVELUMAB [Suspect]
     Active Substance: AVELUMAB
     Indication: NON-SMALL CELL LUNG CANCER
     Route: 042
     Dates: start: 20171113, end: 20171218
  3. TRAMOSEL [Concomitant]
     Indication: BONE PAIN
     Dosage: 100/2 MG/ML
     Route: 042
     Dates: start: 20171115

REACTIONS (1)
  - Bone pain [Recovered/Resolved with Sequelae]

NARRATIVE: CASE EVENT DATE: 20171223
